FAERS Safety Report 5767976-1 (Version None)
Quarter: 2008Q2

REPORT INFORMATION
  Report Type: 
  Country: None (occurrence: None)
  Receive Date: 20080612
  Receipt Date: 20080530
  Transmission Date: 20081010
  Serious: Yes (Hospitalization)
  Sender: FDA-Public Use
  Company Number: JP-PURDUE-MAG_2008_0000662

PATIENT
  Age: 76 Year
  Sex: Male

DRUGS (5)
  1. OXYCODONE HCL [Suspect]
     Indication: DRUG USE FOR UNKNOWN INDICATION
     Route: 048
     Dates: start: 20070409
  2. BRIPLATIN [Suspect]
     Indication: LUNG NEOPLASM MALIGNANT
     Dosage: 142 MG, MONTHLY
     Route: 041
     Dates: start: 20070216, end: 20070330
  3. NAVELBINE [Suspect]
     Indication: LUNG NEOPLASM MALIGNANT
     Dosage: 70 MG, MONTHLY
     Route: 040
     Dates: start: 20070216, end: 20070406
  4. DIFLUCAN [Concomitant]
  5. MAXIPIME [Concomitant]

REACTIONS (7)
  - ANOREXIA [None]
  - HEPATIC FUNCTION ABNORMAL [None]
  - MALAISE [None]
  - NAUSEA [None]
  - NEUTROPHIL COUNT DECREASED [None]
  - PLATELET COUNT DECREASED [None]
  - VOMITING [None]
